FAERS Safety Report 10703490 (Version 2)
Quarter: 2015Q4

REPORT INFORMATION
  Report Type: Spontaneous
  Country: GB (occurrence: GB)
  Receive Date: 20150112
  Receipt Date: 20151221
  Transmission Date: 20160304
  Serious: Yes (Life-Threatening, Hospitalization)
  Sender: FDA-Public Use
  Company Number: GB-ACCORD-028016

PATIENT
  Age: 68 Year
  Sex: Female

DRUGS (4)
  1. RAMIPRIL. [Suspect]
     Active Substance: RAMIPRIL
     Indication: HYPERTENSION
     Dates: start: 2003
  2. LOSARTAN. [Concomitant]
     Active Substance: LOSARTAN
  3. LISINOPRIL. [Concomitant]
     Active Substance: LISINOPRIL
  4. CANDESARTAN [Concomitant]
     Active Substance: CANDESARTAN

REACTIONS (1)
  - Anaphylactic reaction [Recovered/Resolved]

NARRATIVE: CASE EVENT DATE: 20141224
